FAERS Safety Report 9479294 (Version 1)
Quarter: 2013Q3

REPORT INFORMATION
  Report Type: Spontaneous
  Country: FR (occurrence: FR)
  Receive Date: 20130827
  Receipt Date: 20130827
  Transmission Date: 20140515
  Serious: Yes (Other)
  Sender: FDA-Public Use
  Company Number: FR-WATSON-2013-14962

PATIENT
  Age: 36 Year
  Sex: Male

DRUGS (2)
  1. BACLOFEN (UNKNOWN) [Suspect]
     Indication: SUICIDE ATTEMPT
     Dosage: 450 MG, UNK
     Route: 048
  2. ALCOHOL [Suspect]
     Indication: SUICIDE ATTEMPT
     Dosage: UNK
     Route: 065

REACTIONS (4)
  - Confusional state [Unknown]
  - Agitation [Unknown]
  - Tremor [Unknown]
  - Somnolence [Unknown]
